FAERS Safety Report 6675226-7 (Version None)
Quarter: 2010Q2

REPORT INFORMATION
  Report Type: 
  Country: None (occurrence: None)
  Receive Date: 20100409
  Receipt Date: 20100402
  Transmission Date: 20101027
  Serious: Yes (Hospitalization, Other)
  Sender: FDA-Public Use
  Company Number: US-CUBIST-2009S1000464

PATIENT
  Age: 1 Day
  Sex: Male
  Weight: 3.1 kg

DRUGS (1)
  1. CUBICIN [Suspect]
     Dates: start: 20081111, end: 20081218

REACTIONS (2)
  - DRUG WITHDRAWAL SYNDROME NEONATAL [None]
  - OPIATES POSITIVE [None]
